FAERS Safety Report 25359241 (Version 3)
Quarter: 2025Q3

REPORT INFORMATION
  Report Type: Spontaneous
  Country: US (occurrence: US)
  Receive Date: 20250526
  Receipt Date: 20250729
  Transmission Date: 20251021
  Serious: No
  Sender: SANOFI AVENTIS
  Company Number: US-SA-2025SA149631

PATIENT
  Age: 75 Year
  Sex: Female
  Weight: 51.36 kg

DRUGS (15)
  1. DUPIXENT [Suspect]
     Active Substance: DUPILUMAB
     Indication: Asthma
     Dosage: 300 MG, QOW
     Route: 058
     Dates: start: 20250509
  2. LEFLUNOMIDE [Concomitant]
     Active Substance: LEFLUNOMIDE
  3. LOSARTAN POTASSIUM [Concomitant]
     Active Substance: LOSARTAN POTASSIUM
  4. MONTELUKAST SODIUM [Concomitant]
     Active Substance: MONTELUKAST SODIUM
  5. TRELEGY ELLIPTA [Concomitant]
     Active Substance: FLUTICASONE FUROATE\UMECLIDINIUM BROMIDE\VILANTEROL TRIFENATATE
  6. ATORVASTATIN CALCIUM [Concomitant]
     Active Substance: ATORVASTATIN CALCIUM
  7. FAMOTIDINE [Concomitant]
     Active Substance: FAMOTIDINE
  8. MIRTAZAPINE [Concomitant]
     Active Substance: MIRTAZAPINE
  9. MUCINEX [Concomitant]
     Active Substance: GUAIFENESIN
  10. PREDNISONE [Concomitant]
     Active Substance: PREDNISONE
  11. FLUOROMETHOLONE [Concomitant]
     Active Substance: FLUOROMETHOLONE
  12. FOLIC ACID [Concomitant]
     Active Substance: FOLIC ACID
  13. SUCRALFATE [Concomitant]
     Active Substance: SUCRALFATE
  14. CALCIUM [Concomitant]
     Active Substance: CALCIUM
  15. TYLENOL [Concomitant]
     Active Substance: ACETAMINOPHEN
     Indication: Headache

REACTIONS (5)
  - Blood pressure increased [Not Recovered/Not Resolved]
  - Headache [Not Recovered/Not Resolved]
  - Nasopharyngitis [Unknown]
  - Sneezing [Unknown]
  - Rhinorrhoea [Unknown]

NARRATIVE: CASE EVENT DATE: 20250101
